FAERS Safety Report 16363593 (Version 2)
Quarter: 2019Q2

REPORT INFORMATION
  Report Type: Spontaneous
  Country: CA (occurrence: CA)
  Receive Date: 20190528
  Receipt Date: 20190531
  Transmission Date: 20190711
  Serious: Yes (Life-Threatening)
  Sender: FDA-Public Use
  Company Number: CA-ASTRAZENECA-2019SE78949

PATIENT
  Age: 59 Year
  Sex: Male

DRUGS (2)
  1. ALVESCO [Concomitant]
     Active Substance: CICLESONIDE
  2. SYMBICORT [Suspect]
     Active Substance: BUDESONIDE\FORMOTEROL FUMARATE DIHYDRATE
     Dosage: 200 MG 2 PUFFS TWO TIMES A DAY
     Route: 055

REACTIONS (6)
  - Intraocular pressure test [Unknown]
  - Mood swings [Unknown]
  - Depression [Unknown]
  - Insomnia [Unknown]
  - Suicidal ideation [Unknown]
  - Migraine [Unknown]
